FAERS Safety Report 10442792 (Version 1)
Quarter: 2014Q3

REPORT INFORMATION
  Report Type: Report from Study
  Country: AR (occurrence: AR)
  Receive Date: 20140909
  Receipt Date: 20140909
  Transmission Date: 20150326
  Serious: Yes (Other)
  Sender: FDA-Public Use
  Company Number: PHHY2014AR116189

PATIENT
  Age: 61 Year
  Sex: Male

DRUGS (1)
  1. EXFORGE HCT [Suspect]
     Active Substance: AMLODIPINE BESYLATE\HYDROCHLOROTHIAZIDE\VALSARTAN
     Indication: HYPERTENSION
     Dosage: 2 DF, DAILY
     Route: 048

REACTIONS (7)
  - Spinal fracture [Recovering/Resolving]
  - Loss of consciousness [Recovering/Resolving]
  - Bronchospasm [Recovering/Resolving]
  - Influenza [Recovering/Resolving]
  - Road traffic accident [Recovering/Resolving]
  - Choking sensation [Recovering/Resolving]
  - Blood pressure increased [Recovering/Resolving]

NARRATIVE: CASE EVENT DATE: 20140828
